FAERS Safety Report 10570388 (Version 1)
Quarter: 2014Q4

REPORT INFORMATION
  Report Type: Spontaneous
  Country: US (occurrence: US)
  Receive Date: 20141107
  Receipt Date: 20141107
  Transmission Date: 20150529
  Serious: Yes (Death)
  Sender: FDA-Public Use
  Company Number: US-CIPLA LTD.-2014US01680

PATIENT

DRUGS (8)
  1. TOPIRAMATE. [Suspect]
     Active Substance: TOPIRAMATE
     Indication: EPILEPSY
     Dosage: UNK
  2. PHENYTOIN. [Suspect]
     Active Substance: PHENYTOIN
     Indication: EPILEPSY
     Dosage: UNK
  3. RETIGABINE [Suspect]
     Active Substance: EZOGABINE
     Dosage: 200 MG, TID
     Route: 048
  4. CARBAMAZEPINE. [Suspect]
     Active Substance: CARBAMAZEPINE
     Indication: EPILEPSY
     Dosage: UNK
  5. RETIGABINE [Suspect]
     Active Substance: EZOGABINE
     Dosage: 100 MG, TID
     Route: 048
  6. RETIGABINE [Suspect]
     Active Substance: EZOGABINE
     Dosage: 200 MG, BID
     Route: 048
  7. RETIGABINE [Suspect]
     Active Substance: EZOGABINE
     Indication: EPILEPSY
     Dosage: 100 MG, BID
     Route: 048
  8. VALPROIC ACID. [Suspect]
     Active Substance: VALPROIC ACID
     Indication: EPILEPSY
     Dosage: UNK

REACTIONS (1)
  - Death [Fatal]
